FAERS Safety Report 19271407 (Version 1)
Quarter: 2021Q2

REPORT INFORMATION
  Report Type: Report from Study
  Country: CA (occurrence: CA)
  Receive Date: 20210518
  Receipt Date: 20210518
  Transmission Date: 20210717
  Serious: Yes (Hospitalization)
  Sender: FDA-Public Use
  Company Number: CA-JNJFOC-20210350046

PATIENT
  Age: 17 Year
  Sex: Female
  Weight: 54.6 kg

DRUGS (1)
  1. REMICADE [Suspect]
     Active Substance: INFLIXIMAB
     Indication: CROHN^S DISEASE
     Dosage: N 05?MAY? 2021, SHE RECEIVED A DOSE OF REMICADE (800MG).
     Route: 042
     Dates: start: 20180716

REACTIONS (3)
  - Abdominal pain [Unknown]
  - Urinary tract infection [Not Recovered/Not Resolved]
  - Treatment noncompliance [Unknown]

NARRATIVE: CASE EVENT DATE: 20210310
